FAERS Safety Report 12786866 (Version 1)
Quarter: 2016Q3

REPORT INFORMATION
  Report Type: Spontaneous
  Country: US (occurrence: US)
  Receive Date: 20160927
  Receipt Date: 20160927
  Transmission Date: 20161109
  Serious: Yes (Hospitalization)
  Sender: FDA-Public Use
  Company Number: None

PATIENT
  Age: 29 Year
  Sex: Male
  Weight: 74 kg

DRUGS (25)
  1. ORKAMBI [Suspect]
     Active Substance: IVACAFTOR\LUMACAFTOR
     Indication: CYSTIC FIBROSIS
     Route: 048
     Dates: start: 20150901, end: 20160920
  2. ABUTEROL (PROVENTIL) [Concomitant]
  3. NEB INHALATION SOLUTION [Concomitant]
  4. ASCORBIC ACID (VITAMIN C) [Concomitant]
     Active Substance: ASCORBIC ACID
  5. AZTREONAM LYSINE (CAYSTON) [Concomitant]
  6. PENINSULIN INJECTION PEN [Concomitant]
  7. MULTIVIT-MINERALS-COENZYME Q10 (AQUADEKS) [Concomitant]
  8. VITAMIN D3 [Concomitant]
     Active Substance: CHOLECALCIFEROL
  9. CHOLECALCIFEROL [Concomitant]
     Active Substance: CHOLECALCIFEROL
  10. ZITHROMAX [Concomitant]
     Active Substance: AZITHROMYCIN DIHYDRATE
  11. NEB INHALATION SOLUTION [Concomitant]
  12. SYMBICORT [Concomitant]
     Active Substance: BUDESONIDE\FORMOTEROL FUMARATE DIHYDRATE
  13. PENINSULN [Concomitant]
  14. POLYETHLENE GLYCOL (MIRALAX) [Concomitant]
  15. LANTUS SOLOSTAR [Concomitant]
     Active Substance: INSULIN GLARGINE
  16. NAPROXEN (NAPROSYN) [Concomitant]
  17. NOVOLOG [Concomitant]
     Active Substance: INSULIN ASPART
  18. MULTIVITAMIN [Concomitant]
     Active Substance: VITAMINS
  19. LIPASE-PROTEASE-CMYLASE (CREON) [Concomitant]
  20. MEN^S FORMULA [Concomitant]
  21. DRONASE ALPHA (PULMOZYME) [Concomitant]
  22. CAPDREC [Concomitant]
  23. LEVAQUIN [Concomitant]
     Active Substance: LEVOFLOXACIN
  24. TOBRAMYCIN (TOBI PODHALER) [Concomitant]
  25. CAPDEV [Concomitant]

REACTIONS (3)
  - Myositis [None]
  - Rhabdomyolysis [None]
  - Compartment syndrome [None]

NARRATIVE: CASE EVENT DATE: 20160920
